FAERS Safety Report 12439611 (Version 1)
Quarter: 2016Q2

REPORT INFORMATION
  Report Type: Spontaneous
  Country: US (occurrence: US)
  Receive Date: 20160606
  Receipt Date: 20160606
  Transmission Date: 20160815
  Serious: Yes (Hospitalization, Other)
  Sender: FDA-Public Use
  Company Number: US-BRISTOL-MYERS SQUIBB COMPANY-BMS-2016-042817

PATIENT
  Age: 93 Year
  Sex: Female

DRUGS (1)
  1. COUMADIN [Suspect]
     Active Substance: WARFARIN SODIUM
     Indication: ATRIAL FIBRILLATION
     Dosage: 3 MG, UNK
     Route: 065

REACTIONS (6)
  - Haemoglobin decreased [Unknown]
  - Disorientation [Unknown]
  - Feeling abnormal [Unknown]
  - International normalised ratio increased [Unknown]
  - Transfusion [Unknown]
  - Loss of consciousness [Unknown]
